FAERS Safety Report 13148836 (Version 2)
Quarter: 2017Q1

REPORT INFORMATION
  Report Type: Report from Study
  Country: US (occurrence: US)
  Receive Date: 20170124
  Receipt Date: 20170124
  Transmission Date: 20170428
  Serious: No
  Sender: FDA-Public Use
  Company Number: US-AMGEN-USASL2016177963

PATIENT
  Age: 82 Year
  Sex: Male

DRUGS (1)
  1. REPATHA [Suspect]
     Active Substance: EVOLOCUMAB
     Indication: VASCULAR GRAFT
     Dosage: 140 MG, Q2WK
     Route: 065

REACTIONS (3)
  - Hypoacusis [Unknown]
  - Off label use [Unknown]
  - Blood glucose fluctuation [Unknown]
